APPROVED DRUG PRODUCT: FENOLDOPAM MESYLATE
Active Ingredient: FENOLDOPAM MESYLATE
Strength: EQ 10MG BASE/ML
Dosage Form/Route: INJECTABLE;INJECTION
Application: A077826 | Product #001
Applicant: TEVA PARENTERAL MEDICINES INC
Approved: Mar 7, 2007 | RLD: No | RS: No | Type: DISCN